FAERS Safety Report 5929479-0 (Version None)
Quarter: 2008Q4

REPORT INFORMATION
  Report Type: 
  Country: None (occurrence: None)
  Receive Date: 20081024
  Receipt Date: 20081016
  Transmission Date: 20090506
  Serious: Yes (Other)
  Sender: FDA-Public Use
  Company Number: US-JNJFOC-20081004576

PATIENT
  Sex: Female
  Weight: 111.13 kg

DRUGS (7)
  1. REMICADE [Suspect]
     Route: 042
  2. REMICADE [Suspect]
     Indication: CROHN'S DISEASE
     Route: 042
  3. TOPROL-XL [Concomitant]
  4. COUMADIN [Concomitant]
  5. COLAZAL [Concomitant]
  6. HYDROCHLOROTHIAZIDE [Concomitant]
  7. VICODIN [Concomitant]

REACTIONS (1)
  - BREAST CANCER [None]
